FAERS Safety Report 6431766-7 (Version None)
Quarter: 2009Q4

REPORT INFORMATION
  Report Type: 
  Country: None (occurrence: None)
  Receive Date: 20091104
  Receipt Date: 20091030
  Transmission Date: 20100525
  Serious: Yes (Hospitalization)
  Sender: FDA-Public Use
  Company Number: 2009US003389

PATIENT
  Age: 15 Year
  Sex: Male

DRUGS (12)
  1. AMBISOME [Suspect]
     Indication: CANDIDIASIS
     Dosage: 125 MG, UID/QD, IV NOS
     Route: 042
     Dates: start: 20090814, end: 20090819
  2. PROGRAF [Concomitant]
  3. SULFAMETHOXAZOLE AND TRIMETHOPRIM [Concomitant]
  4. PENTAZOCINE LACTATE [Concomitant]
  5. GANCICLOVIR [Concomitant]
  6. SOLDEM 1 (GLUCOSE, SODIUM CHLORIDE, SODIUM LACTATE) [Concomitant]
  7. NOVO HEPARIN [Concomitant]
  8. VFEND [Concomitant]
  9. FUNGUARD (MICAFUNGIN SODIUM) [Concomitant]
  10. MEROPEN (MEROPENEM TRIHYDRATE) [Concomitant]
  11. PLATELETS [Concomitant]
  12. RED BLOOD CELLS [Concomitant]

REACTIONS (1)
  - PANCREATITIS ACUTE [None]
